FAERS Safety Report 5390250-2 (Version None)
Quarter: 2007Q3

REPORT INFORMATION
  Report Type: 
  Country: None (occurrence: None)
  Receive Date: 20070716
  Receipt Date: 20061012
  Transmission Date: 20080115
  Serious: Yes (Other)
  Sender: FDA-Public Use
  Company Number: MPS1-10597

PATIENT
  Age: 23 Month
  Sex: Female
  Weight: 14 kg

DRUGS (4)
  1. ALDURAZYME [Suspect]
     Indication: MUCOPOLYSACCHARIDOSIS I
     Dates: start: 20060101
  2. THYMOGLOBULIN [Suspect]
     Indication: BONE MARROW TRANSPLANT
     Dates: start: 20061010
  3. BUSULFAN [Concomitant]
  4. CYCLOPHOSPHAMIDE [Concomitant]

REACTIONS (1)
  - ERYTHEMA MULTIFORME [None]
